FAERS Safety Report 23573960 (Version 1)
Quarter: 2024Q1

REPORT INFORMATION
  Report Type: Spontaneous
  Country: FR (occurrence: FR)
  Receive Date: 20240228
  Receipt Date: 20240228
  Transmission Date: 20240409
  Serious: Yes (Hospitalization)
  Sender: FDA-Public Use
  Company Number: FR-AFSSAPS-AN2024000217

PATIENT
  Age: 15 Year
  Sex: Male
  Weight: 62 kg

DRUGS (1)
  1. ISOTRETINOIN [Suspect]
     Active Substance: ISOTRETINOIN
     Indication: Acne
     Dosage: UNK
     Route: 048
     Dates: start: 20231222, end: 20240123

REACTIONS (5)
  - Lip oedema [Recovering/Resolving]
  - Oral mucosa erosion [Recovering/Resolving]
  - Rash papular [Recovering/Resolving]
  - Staphylococcal skin infection [Recovering/Resolving]
  - Stomatitis [Recovering/Resolving]

NARRATIVE: CASE EVENT DATE: 20240119
